FAERS Safety Report 7793466-0 (Version None)
Quarter: 2011Q4

REPORT INFORMATION
  Report Type: 
  Country: None (occurrence: None)
  Receive Date: 20111003
  Receipt Date: 20110922
  Transmission Date: 20120403
  Serious: Yes (Other)
  Sender: FDA-Public Use
  Company Number: US-ASTRAZENECA-2011SE57338

PATIENT
  Age: 46 Year
  Sex: Female

DRUGS (2)
  1. SEROQUEL [Suspect]
     Indication: BIPOLAR DISORDER
     Dosage: TOTAL DAILY DOSE; 500-550 MG
     Route: 048
     Dates: start: 20110301, end: 20110922
  2. TRILEPTAL [Concomitant]

REACTIONS (1)
  - AURA [None]
